FAERS Safety Report 8495350-6 (Version None)
Quarter: 2012Q3

REPORT INFORMATION
  Report Type: 
  Country: None (occurrence: None)
  Receive Date: 20120709
  Receipt Date: 20120703
  Transmission Date: 20120928
  Serious: Yes (Hospitalization)
  Sender: FDA-Public Use
  Company Number: US-BAYER-2012-067709

PATIENT
  Age: 30 Year
  Sex: Female

DRUGS (23)
  1. HYDROCODONE BITARTRATE + ACETAMINOPHEN [Concomitant]
     Dosage: 7.5 - 500 MG
     Route: 048
     Dates: start: 20090905, end: 20090911
  2. VITAMIN B-12 [Concomitant]
     Dosage: 1000 MCG/ML, UNK
     Route: 030
  3. YAZ [Suspect]
  4. VITAMINS NOS [Concomitant]
     Route: 048
  5. PIROXICAM [Concomitant]
     Dosage: 20 MG, QD
     Route: 048
  6. VERAMYST [Concomitant]
     Dosage: 27.5 MCG 2 SPRAYS EVERY DAY
     Route: 055
  7. NEXIUM [Concomitant]
     Dosage: 40 MG, BID
     Route: 048
  8. CALCIUM WITH VITAMIN D [Concomitant]
     Dosage: 100 MG, UNK
     Route: 048
  9. CHEWABLE IRON TABLET [Concomitant]
     Dosage: 15 MG, DAILY
     Route: 048
  10. CARAFATE [Concomitant]
     Dosage: 1 GM/10 ML SUSPENSION
     Route: 048
     Dates: start: 20091012, end: 20091024
  11. THIAMINE HCL [Concomitant]
     Dosage: 100 MG/ML, EVERY MONTH
     Route: 042
  12. ZANAFLEX [Concomitant]
     Dosage: 4 MG, QON
     Route: 048
  13. CEPHALEXIN [Concomitant]
     Dosage: 250 MG/5 ML
     Route: 048
     Dates: start: 20090911
  14. DIFLUCAN [Concomitant]
     Dosage: 150 MG, TIMES ONE
  15. METHOCARBAMOL [Concomitant]
     Dosage: 500 MG, UNK
     Route: 048
     Dates: start: 20090729
  16. METFORMIN HCL [Concomitant]
     Dosage: 500 MG, UNK
     Route: 048
     Dates: start: 20090119, end: 20090824
  17. PROCHLORPERAZINE [Concomitant]
     Dosage: 10 MG, UNK
     Route: 048
     Dates: start: 20090905, end: 20090912
  18. DROSPIRENONE AND ETHINYL ESTRADIOL [Suspect]
  19. TRIAMCINOLONE [Concomitant]
     Dosage: 0.1 %, UNK
     Route: 061
     Dates: start: 20090912
  20. SPIRONOLACTONE [Concomitant]
     Dosage: 25 MG, UNK
     Route: 048
     Dates: start: 20090119, end: 20090824
  21. PREDNISOLONE [Concomitant]
     Dosage: 15 MG/5ML
     Route: 048
     Dates: start: 20090912
  22. CLOTRIMAZOLE [Concomitant]
     Dosage: 1 %, BID, (TWO TIMES DAILY) PRN ( AS NEEDED
     Route: 061
  23. NYSTOP [Concomitant]
     Dosage: 1000,000 UNITS/GM
     Dates: start: 20090919, end: 20091215

REACTIONS (1)
  - DEEP VEIN THROMBOSIS [None]
